FAERS Safety Report 8579907-X (Version None)
Quarter: 2012Q3

REPORT INFORMATION
  Report Type: 
  Country: None (occurrence: None)
  Receive Date: 20120808
  Receipt Date: 20120727
  Transmission Date: 20120928
  Serious: Yes (Life-Threatening, Hospitalization, Other)
  Sender: FDA-Public Use
  Company Number: FR-BRISTOL-MYERS SQUIBB COMPANY-16825432

PATIENT
  Age: 58 Year
  Sex: Male

DRUGS (1)
  1. LYSODREN [Suspect]
     Indication: ADRENOCORTICAL CARCINOMA
     Dosage: 1 DF= 2.5 TO 5.5 GRAM.
     Dates: start: 20090301, end: 20120427

REACTIONS (5)
  - SEPTIC SHOCK [None]
  - PANCREATITIS ACUTE [None]
  - THROMBOTIC MICROANGIOPATHY [None]
  - ARRHYTHMIA [None]
  - RENAL FAILURE ACUTE [None]
